FAERS Safety Report 18533544 (Version 1)
Quarter: 2020Q4

REPORT INFORMATION
  Report Type: Spontaneous
  Country: US (occurrence: US)
  Receive Date: 20201120
  Receipt Date: 20201120
  Transmission Date: 20210114
  Serious: Yes (Death)
  Sender: FDA-Public Use
  Company Number: None

PATIENT
  Sex: Male

DRUGS (2)
  1. SAPROPTERIN DIHY PWD PACKETS [Suspect]
     Active Substance: SAPROPTERIN
     Indication: PHENYLKETONURIA
     Dosage: ?          OTHER DOSE:SEE EVENT;OTHER FREQUENCY:SEE EVENT;?
     Route: 048
     Dates: start: 20201104, end: 202011
  2. SAPROPTERIN DIHY ORAL PWD [Suspect]
     Active Substance: SAPROPTERIN
     Indication: PHENYLKETONURIA
     Dosage: ?          OTHER DOSE:SEE EVENT;OTHER FREQUENCY:SEE EVENT; DISSO;LVE 3-500MG AND 1 100 MG PACKET?
     Route: 048
     Dates: start: 20201104, end: 202011

REACTIONS (1)
  - Death [None]
